FAERS Safety Report 25904227 (Version 1)
Quarter: 2025Q4

REPORT INFORMATION
  Report Type: Spontaneous
  Country: GB (occurrence: GB)
  Receive Date: 20251010
  Receipt Date: 20251010
  Transmission Date: 20260118
  Serious: Yes (Hospitalization)
  Sender: AMGEN
  Company Number: GB-AMGEN-GBRSP2025198089

PATIENT
  Age: 4 Year
  Sex: Female

DRUGS (1)
  1. BLINCYTO [Suspect]
     Active Substance: BLINATUMOMAB
     Indication: B-cell type acute leukaemia
     Dosage: UNK, PICC LINE
     Route: 040

REACTIONS (3)
  - Illness [Unknown]
  - Alopecia [Unknown]
  - Weight decreased [Unknown]
